FAERS Safety Report 23147851 (Version 4)
Quarter: 2023Q4

REPORT INFORMATION
  Report Type: Report from Study
  Country: US (occurrence: None)
  Receive Date: 20231106
  Receipt Date: 20231124
  Transmission Date: 20240109
  Serious: Yes (Hospitalization)
  Sender: FDA-Public Use
  Company Number: US-ROCHE-3450617

PATIENT
  Age: 47 Year
  Sex: Male
  Weight: 79.4 kg

DRUGS (19)
  1. OCRELIZUMAB [Suspect]
     Active Substance: OCRELIZUMAB
     Indication: Primary progressive multiple sclerosis
     Dosage: DOSE CONCENTRATION 1.2 MG/ML?ON 18/MAY/2023, HE RECEIVED MOST RECENT DOSE OF BLINDED OCRELIZUMAB PRI
     Route: 042
     Dates: start: 20210709
  2. PLACEBO [Suspect]
     Active Substance: UNSPECIFIED INGREDIENT
     Indication: Primary progressive multiple sclerosis
     Dosage: ON 30/OCT/2023, HE RECEIVED MOST RECENT DOSE OF BLINDED OCRELIZUMAB PRIOR TO SAE/AE
     Route: 048
     Dates: start: 20210709
  3. BACLOFEN [Concomitant]
     Active Substance: BACLOFEN
     Route: 048
     Dates: start: 2009
  4. KLONOPIN [Concomitant]
     Active Substance: CLONAZEPAM
     Indication: Affect lability
     Route: 048
     Dates: start: 2009
  5. KLONOPIN [Concomitant]
     Active Substance: CLONAZEPAM
     Route: 048
     Dates: start: 2009
  6. DEXTROMETHORPHAN [Concomitant]
     Active Substance: DEXTROMETHORPHAN
     Indication: Affect lability
     Route: 048
  7. LAMICTAL [Concomitant]
     Active Substance: LAMOTRIGINE
     Indication: Seizure
     Route: 048
     Dates: start: 2015
  8. LISDEXAMFETAMINE [Concomitant]
     Active Substance: LISDEXAMFETAMINE
     Route: 048
     Dates: start: 2005
  9. DITROPAN XL [Concomitant]
     Active Substance: OXYBUTYNIN CHLORIDE
     Indication: Neurogenic bladder
     Route: 048
     Dates: start: 2008
  10. LYRICA [Concomitant]
     Active Substance: PREGABALIN
     Indication: Seizure
     Route: 048
  11. INDERAL LA [Concomitant]
     Active Substance: PROPRANOLOL HYDROCHLORIDE
     Route: 048
  12. SEROQUEL [Concomitant]
     Active Substance: QUETIAPINE FUMARATE
     Indication: Bipolar disorder
     Route: 048
  13. RESTORIL [Concomitant]
     Active Substance: TEMAZEPAM
     Indication: Bipolar disorder
     Route: 048
  14. QUINIDINE SULFATE [Concomitant]
     Active Substance: QUINIDINE SULFATE
     Route: 048
  15. COLACE [Concomitant]
     Active Substance: DOCUSATE SODIUM
     Route: 048
     Dates: start: 20220116
  16. METAMUCIL [Concomitant]
     Active Substance: PLANTAGO SEED
     Route: 048
     Dates: start: 20220116
  17. CEFPODOXIME [Concomitant]
     Active Substance: CEFPODOXIME
     Indication: Urinary tract infection
     Route: 048
     Dates: start: 20230515
  18. AUGMENTIN [Concomitant]
     Active Substance: AMOXICILLIN\CLAVULANATE POTASSIUM
     Indication: Urinary tract infection
     Route: 048
     Dates: start: 20230804
  19. NITROFURANTOIN [Concomitant]
     Active Substance: NITROFURANTOIN
     Indication: Urinary tract infection
     Route: 048
     Dates: start: 20231024, end: 20231030

REACTIONS (1)
  - Encephalopathy [Recovered/Resolved]

NARRATIVE: CASE EVENT DATE: 20231030
